FAERS Safety Report 9950146 (Version 2)
Quarter: 2014Q1

REPORT INFORMATION
  Report Type: Spontaneous
  Country: DE (occurrence: DE)
  Receive Date: 20140304
  Receipt Date: 20140304
  Transmission Date: 20141002
  Serious: Yes (Other)
  Sender: FDA-Public Use
  Company Number: DE-009507513-1303DEU008672

PATIENT
  Age: 29 Year
  Sex: Female

DRUGS (1)
  1. IMPLANON [Suspect]
     Dosage: 1 DF, UNK
     Route: 058
     Dates: start: 2010, end: 20140207

REACTIONS (6)
  - Surgery [Recovered/Resolved]
  - Mood swings [Unknown]
  - Metrorrhagia [Unknown]
  - Medical device complication [Recovered/Resolved]
  - Loss of libido [Unknown]
  - Amenorrhoea [Not Recovered/Not Resolved]
